FAERS Safety Report 22958039 (Version 2)
Quarter: 2023Q4

REPORT INFORMATION
  Report Type: Spontaneous
  Country: US (occurrence: US)
  Receive Date: 20230919
  Receipt Date: 20231220
  Transmission Date: 20240109
  Serious: No
  Sender: FDA-Public Use
  Company Number: US-PROVENTION BIO, INC.-US-PRAG-23-00069

PATIENT
  Age: 35 Year
  Sex: Female
  Weight: 56.689 kg

DRUGS (6)
  1. TZIELD [Suspect]
     Active Substance: TEPLIZUMAB-MZWV
     Indication: Type 1 diabetes mellitus
     Dosage: 169 MICROGRAM, SINGLE
     Route: 042
     Dates: start: 20230814, end: 20230814
  2. TZIELD [Suspect]
     Active Substance: TEPLIZUMAB-MZWV
     Dosage: 330 MICROGRAM, SINGLE
     Route: 042
     Dates: start: 20230815, end: 20230815
  3. TZIELD [Suspect]
     Active Substance: TEPLIZUMAB-MZWV
     Dosage: 650 MCG
     Route: 042
     Dates: start: 20230816, end: 20230816
  4. TZIELD [Suspect]
     Active Substance: TEPLIZUMAB-MZWV
     Dosage: 1300 MCG
     Route: 042
     Dates: start: 20230817, end: 20230817
  5. SYNTHROID [Concomitant]
     Active Substance: LEVOTHYROXINE SODIUM
     Indication: Product used for unknown indication
     Dosage: 100 MCG
  6. METFORMIN [Concomitant]
     Active Substance: METFORMIN HYDROCHLORIDE
     Indication: Product used for unknown indication
     Dosage: 500 MG

REACTIONS (7)
  - Dehydration [Not Recovered/Not Resolved]
  - Chromaturia [Unknown]
  - Blood alkaline phosphatase increased [Unknown]
  - Cytokine release syndrome [Not Recovered/Not Resolved]
  - Rash pruritic [Not Recovered/Not Resolved]
  - Aspartate aminotransferase increased [Unknown]
  - Alanine aminotransferase increased [Unknown]

NARRATIVE: CASE EVENT DATE: 20230814
